FAERS Safety Report 21043706 (Version 2)
Quarter: 2022Q3

REPORT INFORMATION
  Report Type: Spontaneous
  Country: CA (occurrence: CA)
  Receive Date: 20220705
  Receipt Date: 20220707
  Transmission Date: 20221027
  Serious: Yes (Hospitalization)
  Sender: FDA-Public Use
  Company Number: CA-PFIZER INC-PV202200011380

PATIENT
  Age: 34 Year
  Sex: Female

DRUGS (3)
  1. BRAFTOVI [Suspect]
     Active Substance: ENCORAFENIB
     Dosage: 300 MG
  2. CETUXIMAB [Concomitant]
     Active Substance: CETUXIMAB
     Dosage: UNK
  3. PANITUMUMAB [Concomitant]
     Active Substance: PANITUMUMAB
     Dosage: UNK

REACTIONS (3)
  - Adverse event [Unknown]
  - Product use issue [Unknown]
  - Off label use [Unknown]
